FAERS Safety Report 19873118 (Version 1)
Quarter: 2021Q3

REPORT INFORMATION
  Report Type: Report from Study
  Country: US (occurrence: US)
  Receive Date: 20210923
  Receipt Date: 20210923
  Transmission Date: 20211014
  Serious: Yes (Other)
  Sender: FDA-Public Use
  Company Number: US-GLAXOSMITHKLINE-US2021AMR199636

PATIENT
  Age: 63 Year
  Sex: Female

DRUGS (3)
  1. FLUTICASONE PROPIONATE+SALMETEROL XINAFOATE [Suspect]
     Active Substance: FLUTICASONE PROPIONATE\SALMETEROL XINAFOATE
     Indication: PRODUCT USED FOR UNKNOWN INDICATION
     Dosage: UNK
     Route: 055
  2. DUPILUMAB [Suspect]
     Active Substance: DUPILUMAB
     Indication: ANGINA PECTORIS
  3. DUPILUMAB [Suspect]
     Active Substance: DUPILUMAB
     Indication: ASTHMA
     Dosage: 200 MG QOW, 200MG/1.14ML
     Route: 058
     Dates: start: 20170808

REACTIONS (5)
  - Cataract [Unknown]
  - Cataract operation [Unknown]
  - Product use in unapproved indication [Recovering/Resolving]
  - Oral pain [Not Recovered/Not Resolved]
  - Wrong technique in product usage process [Unknown]

NARRATIVE: CASE EVENT DATE: 20200810
